FAERS Safety Report 9425671 (Version 1)
Quarter: 2013Q3

REPORT INFORMATION
  Report Type: Spontaneous
  Country: FR (occurrence: FR)
  Receive Date: 20130729
  Receipt Date: 20130729
  Transmission Date: 20140515
  Serious: Yes (Hospitalization)
  Sender: FDA-Public Use
  Company Number: FR-JNJFOC-20130714199

PATIENT
  Age: 15 Year
  Sex: Female

DRUGS (4)
  1. RISPERDAL CONSTA [Suspect]
     Indication: AGGRESSION
     Dosage: ONE INJECTION EVERY 15 DAYS
     Route: 030
     Dates: start: 20130215, end: 20130515
  2. RISPERDAL CONSTA [Suspect]
     Indication: BORDERLINE PERSONALITY DISORDER
     Dosage: ONE INJECTION EVERY 15 DAYS
     Route: 030
     Dates: start: 20130215, end: 20130515
  3. RISPERDAL [Suspect]
     Indication: AGGRESSION
     Route: 048
     Dates: start: 20130526, end: 20130705
  4. RISPERDAL [Suspect]
     Indication: BORDERLINE PERSONALITY DISORDER
     Route: 048
     Dates: start: 20130526, end: 20130705

REACTIONS (2)
  - Erythema multiforme [Recovering/Resolving]
  - Off label use [Unknown]
